FAERS Safety Report 6160400-9 (Version None)
Quarter: 2009Q2

REPORT INFORMATION
  Report Type: 
  Country: None (occurrence: None)
  Receive Date: 20090415
  Receipt Date: 20090415
  Transmission Date: 20091009
  Serious: Yes (Hospitalization)
  Sender: FDA-Public Use
  Company Number: None

PATIENT
  Age: 69 Year
  Sex: Male
  Weight: 85.7298 kg

DRUGS (6)
  1. EQUATE UNK UNK [Suspect]
     Indication: HYPERSENSITIVITY
     Dosage: PO
     Route: 048
     Dates: start: 20090406, end: 20090407
  2. PREDNISONE [Concomitant]
  3. TOPROL-XL [Concomitant]
  4. VYTORIN [Concomitant]
  5. CALCIUM 500/VITAMIN D [Concomitant]
  6. ASPIRIN [Concomitant]

REACTIONS (2)
  - CONDITION AGGRAVATED [None]
  - MYASTHENIA GRAVIS [None]
